FAERS Safety Report 9832884 (Version 1)
Quarter: 2014Q1

REPORT INFORMATION
  Report Type: Spontaneous
  Country: CA (occurrence: CA)
  Receive Date: 20140121
  Receipt Date: 20140121
  Transmission Date: 20141002
  Serious: Yes (Other)
  Sender: FDA-Public Use
  Company Number: CA-PFIZER INC-2014013801

PATIENT
  Age: 78 Year
  Sex: Male

DRUGS (1)
  1. LYRICA [Suspect]
     Indication: BACK PAIN
     Dosage: 150 MG, 2X/DAY
     Dates: end: 201308

REACTIONS (6)
  - Renal injury [Unknown]
  - Drug intolerance [Unknown]
  - Fall [Unknown]
  - Limb injury [Unknown]
  - Walking disability [Not Recovered/Not Resolved]
  - Blister [Not Recovered/Not Resolved]
